FAERS Safety Report 21335248 (Version 1)
Quarter: 2022Q3

REPORT INFORMATION
  Report Type: Report from Study
  Country: US (occurrence: US)
  Receive Date: 20220915
  Receipt Date: 20220915
  Transmission Date: 20221026
  Serious: Yes (Other)
  Sender: FDA-Public Use
  Company Number: US-BRISTOL-MYERS SQUIBB COMPANY-2022-103316

PATIENT
  Age: 62 Year
  Sex: Male
  Weight: 78.11 kg

DRUGS (13)
  1. REVLIMID [Suspect]
     Active Substance: LENALIDOMIDE
     Indication: Plasma cell myeloma
     Route: 048
     Dates: start: 202207
  2. MONTELUKAST SODIUM [Concomitant]
     Active Substance: MONTELUKAST SODIUM
  3. DARZALEX [Concomitant]
     Active Substance: DARATUMUMAB
  4. CENTRUM SILVER [ASCORBIC ACID;BIOTIN;CALCIUM;CALCIUM PANTOTHENATE;CHLO [Concomitant]
  5. LEVOTHYROXINE [Concomitant]
     Active Substance: LEVOTHYROXINE
  6. ASPIRIN [Concomitant]
     Active Substance: ASPIRIN
  7. ZINC [Concomitant]
     Active Substance: ZINC
  8. LISINOPRIL [Concomitant]
     Active Substance: LISINOPRIL
  9. DEXAMETHASONE [Concomitant]
     Active Substance: DEXAMETHASONE
  10. ACYCLOVIR [Concomitant]
     Active Substance: ACYCLOVIR
  11. ATORVASTATIN CALCIUM [Concomitant]
     Active Substance: ATORVASTATIN CALCIUM
  12. FISH OIL [Concomitant]
     Active Substance: FISH OIL
  13. VITAMIN D3 [Concomitant]
     Active Substance: CHOLECALCIFEROL

REACTIONS (2)
  - COVID-19 [Unknown]
  - Off label use [Unknown]

NARRATIVE: CASE EVENT DATE: 20220907
